FAERS Safety Report 8726818 (Version 2)
Quarter: 2015Q1

REPORT INFORMATION
  Report Type: Report from Study
  Country: US (occurrence: US)
  Receive Date: 20120816
  Receipt Date: 20150331
  Transmission Date: 20150721
  Serious: Yes (Other)
  Sender: FDA-Public Use
  Company Number: US-ROCHE-1099244

PATIENT
  Sex: Male

DRUGS (4)
  1. LIDOCAINE. [Concomitant]
     Active Substance: LIDOCAINE
     Route: 042
  2. ACTIVASE [Suspect]
     Active Substance: ALTEPLASE
     Dosage: 10 MG BOLUS
     Route: 065
  3. ACTIVASE [Suspect]
     Active Substance: ALTEPLASE
     Indication: ACUTE MYOCARDIAL INFARCTION
     Dosage: 100 MG IN 100 CC NS
     Route: 065
  4. ACTIVASE [Suspect]
     Active Substance: ALTEPLASE
     Dosage: 150 MG/HOUR
     Route: 065

REACTIONS (4)
  - Reperfusion arrhythmia [Unknown]
  - Hyperhidrosis [Unknown]
  - Bradycardia [Unknown]
  - Chest pain [Unknown]
